FAERS Safety Report 8606554-3 (Version None)
Quarter: 2012Q3

REPORT INFORMATION
  Report Type: 
  Country: None (occurrence: None)
  Receive Date: 20120820
  Receipt Date: 20120814
  Transmission Date: 20120928
  Serious: Yes (Life-Threatening)
  Sender: FDA-Public Use
  Company Number: GB-PFIZER INC-2012198014

PATIENT
  Age: 82 Year
  Sex: Female
  Weight: 57.153 kg

DRUGS (14)
  1. SYMBICORT [Concomitant]
     Dates: start: 20120713, end: 20120719
  2. DIAZEPAM [Concomitant]
     Dosage: UNK
     Dates: start: 20120709, end: 20120714
  3. LITHIUM CARBONATE [Concomitant]
     Dosage: UNK
     Dates: start: 20120518, end: 20120519
  4. LITHIUM CARBONATE [Concomitant]
     Dosage: UNK
     Dates: start: 20120713, end: 20120714
  5. RAMIPRIL [Suspect]
     Dosage: UNK
     Dates: start: 20120521
  6. AMLODIPINE [Concomitant]
     Dosage: UNK
     Dates: start: 20120420
  7. LEVOTHYROXINE SODIUM [Concomitant]
     Dosage: UNK
     Dates: start: 20120420
  8. LITHIUM CARBONATE [Concomitant]
     Dosage: UNK
     Dates: start: 20120618, end: 20120619
  9. LOFEPRAMINE [Concomitant]
     Dosage: UNK
     Dates: start: 20061121
  10. BENDROFLUMETHIAZIDE [Concomitant]
     Dosage: UNK
     Dates: start: 20120420
  11. LITHIUM CARBONATE [Interacting]
     Indication: DEPRESSION
     Dosage: UNK
  12. OLANZAPINE [Concomitant]
     Dosage: UNK
     Dates: start: 20061121
  13. ZOPICLONE [Concomitant]
     Dosage: UNK
     Dates: start: 20061121
  14. SYMBICORT [Concomitant]
     Dosage: UNK
     Dates: start: 20120618, end: 20120624

REACTIONS (4)
  - ANTIPSYCHOTIC DRUG LEVEL INCREASED [None]
  - DRUG INTERACTION [None]
  - GLOMERULAR FILTRATION RATE DECREASED [None]
  - EPIDERMAL GROWTH FACTOR RECEPTOR DECREASED [None]
